FAERS Safety Report 14932893 (Version 1)
Quarter: 2018Q2

REPORT INFORMATION
  Report Type: Spontaneous
  Country: US (occurrence: US)
  Receive Date: 20180524
  Receipt Date: 20180524
  Transmission Date: 20180711
  Serious: Yes (Death, Life-Threatening, Other)
  Sender: FDA-Public Use
  Company Number: US-WEST-WARD PHARMACEUTICALS CORP.-US-H14001-18-04171

PATIENT
  Age: 54 Year
  Sex: Male
  Weight: 60 kg

DRUGS (3)
  1. AMPHETAMINE [Suspect]
     Active Substance: AMPHETAMINE
     Indication: PRODUCT USED FOR UNKNOWN INDICATION
     Route: 065
  2. COCAINE [Suspect]
     Active Substance: COCAINE
     Indication: PRODUCT USED FOR UNKNOWN INDICATION
     Route: 065
  3. METHAMPHETAMINE [Suspect]
     Active Substance: METHAMPHETAMINE
     Indication: PRODUCT USED FOR UNKNOWN INDICATION
     Route: 065

REACTIONS (2)
  - Accidental overdose [Fatal]
  - Toxicity to various agents [Fatal]
